FAERS Safety Report 11241171 (Version 1)
Quarter: 2015Q3

REPORT INFORMATION
  Report Type: Spontaneous
  Country: US (occurrence: US)
  Receive Date: 20150706
  Receipt Date: 20150706
  Transmission Date: 20151125
  Serious: Yes (Death, Other)
  Sender: FDA-Public Use
  Company Number: US-ASTELLAS-2015US023247

PATIENT
  Sex: Male

DRUGS (1)
  1. XTANDI [Suspect]
     Active Substance: ENZALUTAMIDE
     Indication: PROSTATE CANCER
     Dosage: 160 MG (4 CAPSULES), ONCE DAILY BY MOUTH
     Route: 048
     Dates: start: 20140814, end: 20150614

REACTIONS (3)
  - General physical health deterioration [Unknown]
  - Death [Fatal]
  - Hip fracture [Unknown]

NARRATIVE: CASE EVENT DATE: 20150614
